FAERS Safety Report 7864790-8 (Version None)
Quarter: 2011Q4

REPORT INFORMATION
  Report Type: 
  Country: None (occurrence: None)
  Receive Date: 20111028
  Receipt Date: 20110803
  Transmission Date: 20120403
  Serious: No
  Sender: FDA-Public Use
  Company Number: US-GLAXOSMITHKLINE-A0801910A

PATIENT
  Age: 7 Year
  Sex: Female
  Weight: 21.1 kg

DRUGS (8)
  1. ADVAIR DISKUS 100/50 [Suspect]
     Indication: ASTHMA
     Route: 055
     Dates: start: 20070208, end: 20090501
  2. BENADRYL [Concomitant]
  3. ALTABAX [Concomitant]
  4. PROTOPIC [Concomitant]
  5. CUTIVATE [Concomitant]
  6. ZYRTEC [Concomitant]
  7. ALLEGRA [Concomitant]
  8. DOXEPIN [Concomitant]

REACTIONS (8)
  - HYPERSENSITIVITY [None]
  - SKIN WARM [None]
  - STAPHYLOCOCCAL INFECTION [None]
  - RASH [None]
  - ECZEMA [None]
  - PRURITUS [None]
  - ERYTHEMA [None]
  - SKIN HAEMORRHAGE [None]
